FAERS Safety Report 16883981 (Version 3)
Quarter: 2021Q3

REPORT INFORMATION
  Report Type: Report from Study
  Country: DE (occurrence: DE)
  Receive Date: 20191004
  Receipt Date: 20210811
  Transmission Date: 20211014
  Serious: Yes (Other)
  Sender: FDA-Public Use
  Company Number: DE-BIOGEN-2019BI00791602

PATIENT
  Age: 38 Year
  Sex: Female
  Weight: 65 kg

DRUGS (6)
  1. PLEGRIDY [Suspect]
     Active Substance: PEGINTERFERON BETA-1A
     Indication: MULTIPLE SCLEROSIS
     Route: 065
     Dates: start: 20180815
  2. LAMOTRIGINE. [Concomitant]
     Active Substance: LAMOTRIGINE
     Indication: EPILEPSY
     Dosage: 50
     Route: 065
     Dates: start: 201710, end: 2018
  3. PLEGRIDY [Suspect]
     Active Substance: PEGINTERFERON BETA-1A
     Indication: MULTIPLE SCLEROSIS
     Route: 058
     Dates: start: 20141119, end: 201801
  4. BIOPANDA (NOS) [Concomitant]
     Indication: VITAMIN SUPPLEMENTATION
     Route: 065
  5. FEMIBION [Concomitant]
     Indication: VITAMIN SUPPLEMENTATION
     Route: 065
     Dates: start: 201710, end: 2018
  6. PLEGRIDY [Suspect]
     Active Substance: PEGINTERFERON BETA-1A
     Route: 065

REACTIONS (2)
  - Caesarean section [Recovered/Resolved]
  - Maternal exposure during pregnancy [Recovered/Resolved]

NARRATIVE: CASE EVENT DATE: 20180813
